FAERS Safety Report 8015324-9 (Version None)
Quarter: 2011Q4

REPORT INFORMATION
  Report Type: 
  Country: None (occurrence: None)
  Receive Date: 20111230
  Receipt Date: 20111219
  Transmission Date: 20120403
  Serious: Yes (Other)
  Sender: FDA-Public Use
  Company Number: US-PERRIGO-11US011283

PATIENT
  Age: 11 Year
  Sex: Male

DRUGS (1)
  1. PE TRIACTING CC NITETIME GRP LIQ 913 [Suspect]
     Indication: PRODUCT USED FOR UNKNOWN INDICATION
     Dosage: UNKNOWN
     Route: 065
     Dates: start: 20111118, end: 20111118

REACTIONS (1)
  - GRAND MAL CONVULSION [None]
